FAERS Safety Report 8817954 (Version 1)
Quarter: 2012Q4

REPORT INFORMATION
  Report Type: 
  Country: US (occurrence: US)
  Receive Date: 20121002
  Receipt Date: 20121002
  Transmission Date: 20130627
  Serious: No
  Sender: FDA-Public Use
  Company Number: US-009507513-1210USA000024

PATIENT
  Age: 19 Year
  Sex: Female

DRUGS (1)
  1. IMPLANON [Suspect]
     Indication: CONTRACEPTION
     Dosage: 1 insertion on left arm
     Dates: start: 20101109

REACTIONS (4)
  - Hypoaesthesia oral [Unknown]
  - Headache [Unknown]
  - Hypoaesthesia [Unknown]
  - Hypoaesthesia [Unknown]
